FAERS Safety Report 4357669-X (Version None)
Quarter: 2004Q2

REPORT INFORMATION
  Report Type: 
  Country: None (occurrence: None)
  Receive Date: 20040510
  Receipt Date: 20040429
  Transmission Date: 20050107
  Serious: Yes (Life-Threatening)
  Sender: FDA-Public Use
  Company Number: 2004211536DE

PATIENT
  Age: 63 Year
  Sex: Male

DRUGS (3)
  1. ZYVOX [Suspect]
     Indication: OSTEOMYELITIS
     Dosage: 600 MG, BID, UNK
     Dates: start: 20040201, end: 20040422
  2. ASPIRINA [Concomitant]
  3. HEPARIN [Concomitant]

REACTIONS (3)
  - EPISTAXIS [None]
  - THROMBOCYTOPENIA [None]
  - WOUND HAEMORRHAGE [None]
